FAERS Safety Report 21762409 (Version 1)
Quarter: 2022Q4

REPORT INFORMATION
  Report Type: Spontaneous
  Country: US (occurrence: US)
  Receive Date: 20221221
  Receipt Date: 20221221
  Transmission Date: 20230112
  Serious: Yes (Death, Life-Threatening, Hospitalization, Other)
  Sender: FDA-Public Use
  Company Number: US-PFIZER INC-PV202200126321

PATIENT
  Age: 4 Month
  Sex: Male

DRUGS (20)
  1. SIROLIMUS [Suspect]
     Active Substance: SIROLIMUS
     Indication: Venolymphatic malformation
     Dosage: 0.8 MG/M2, DAILY (DAY 8)
  2. SIROLIMUS [Suspect]
     Active Substance: SIROLIMUS
     Dosage: 0.14 MG (ORAL SOLUTION, DAY 8)
     Route: 048
  3. SIROLIMUS [Suspect]
     Active Substance: SIROLIMUS
     Dosage: 0.8 MG/M2, DAILY (AT 2 MONTHS)
  4. SIROLIMUS [Suspect]
     Active Substance: SIROLIMUS
     Dosage: 0.18 MG (ORAL SOLUTION, AT 2 MONTHS)
     Route: 048
  5. SIROLIMUS [Suspect]
     Active Substance: SIROLIMUS
     Dosage: 0.8 MG/M2, DAILY (DAY 75)
  6. SIROLIMUS [Suspect]
     Active Substance: SIROLIMUS
     Dosage: 0.22 MG (ORAL SOLUTION, DAY 75)
     Route: 048
  7. SIROLIMUS [Suspect]
     Active Substance: SIROLIMUS
     Dosage: 0.3 MG, DAILY (DAY 83)
  8. SIROLIMUS [Suspect]
     Active Substance: SIROLIMUS
     Dosage: 0.3 MG (ORAL SOLUTION, DAY 83)
     Route: 048
  9. SIROLIMUS [Suspect]
     Active Substance: SIROLIMUS
     Dosage: 0.4 MG, DAILY (DAY 118)
  10. SIROLIMUS [Suspect]
     Active Substance: SIROLIMUS
     Dosage: 0.4 MG (ORAL SOLUTION, DAY 118)
     Route: 048
  11. DOXYCYCLINE [Concomitant]
     Active Substance: DOXYCYCLINE
     Indication: Sclerotherapy
     Dosage: 150 MG (DAY 6)
  12. DOXYCYCLINE [Concomitant]
     Active Substance: DOXYCYCLINE
     Dosage: 150 MG (DAYS 15-29, 4X)
  13. DOXYCYCLINE [Concomitant]
     Active Substance: DOXYCYCLINE
     Dosage: 300 MG (DAY 33)
  14. DOXYCYCLINE [Concomitant]
     Active Substance: DOXYCYCLINE
     Dosage: 300 MG (AT 1 MONTH)
  15. DOXYCYCLINE [Concomitant]
     Active Substance: DOXYCYCLINE
     Dosage: 300 MG (AT 1.5 MONTH, 3X)
  16. DOXYCYCLINE [Concomitant]
     Active Substance: DOXYCYCLINE
     Dosage: 300 MG (AT 2-3 MONTH, 10X)
  17. DOXYCYCLINE [Concomitant]
     Active Substance: DOXYCYCLINE
     Dosage: 300 MG (AT 3-4 MONTH, 7X)
  18. DOXYCYCLINE [Concomitant]
     Active Substance: DOXYCYCLINE
     Dosage: 150 MG (AT 4 MONTHS, 17 DAYS)
  19. BLEOMYCIN [Concomitant]
     Active Substance: BLEOMYCIN SULFATE
     Indication: Sclerotherapy
     Dosage: 15 UNITS (AT 1 MONTH)
  20. PENTAMIDINE [Concomitant]
     Active Substance: PENTAMIDINE
     Indication: Antifungal prophylaxis
     Route: 042

REACTIONS (1)
  - Pulmonary haemorrhage [Fatal]
